FAERS Safety Report 13849877 (Version 2)
Quarter: 2017Q3

REPORT INFORMATION
  Report Type: Spontaneous
  Country: US (occurrence: US)
  Receive Date: 20170809
  Receipt Date: 20170913
  Transmission Date: 20171127
  Serious: Yes (Hospitalization)
  Sender: FDA-Public Use
  Company Number: PHEH2017US024733

PATIENT
  Age: 39 Year
  Sex: Female
  Weight: 79 kg

DRUGS (1)
  1. GILENYA [Suspect]
     Active Substance: FINGOLIMOD HYDROCHLORIDE
     Indication: MULTIPLE SCLEROSIS
     Dosage: 0.5 MG, QD
     Route: 048
     Dates: start: 20150817, end: 20170622

REACTIONS (6)
  - Lymphocyte count decreased [Unknown]
  - Somnolence [Unknown]
  - Headache [Unknown]
  - Meningoencephalitis herpetic [Recovered/Resolved]
  - Pyrexia [Unknown]
  - Mental disorder [Unknown]

NARRATIVE: CASE EVENT DATE: 20160117
